FAERS Safety Report 5851898-1 (Version None)
Quarter: 2008Q3

REPORT INFORMATION
  Report Type: 
  Country: None (occurrence: None)
  Receive Date: 20080820
  Receipt Date: 20080808
  Transmission Date: 20090109
  Serious: Yes (Death, Other)
  Sender: FDA-Public Use
  Company Number: US-PFIZER INC-2005092334

PATIENT
  Sex: Male

DRUGS (6)
  1. NEURONTIN [Suspect]
     Indication: NECROSIS
  2. NEURONTIN [Suspect]
     Indication: PAIN
  3. OXYCONTIN [Suspect]
  4. HYDROCODONE [Suspect]
  5. ENDOCET [Suspect]
  6. ELAVIL [Suspect]

REACTIONS (4)
  - CARDIAC ARREST [None]
  - COMPLETED SUICIDE [None]
  - DRUG INEFFECTIVE [None]
  - MULTIPLE DRUG OVERDOSE ACCIDENTAL [None]
